FAERS Safety Report 18734662 (Version 1)
Quarter: 2021Q1

REPORT INFORMATION
  Report Type: Spontaneous
  Country: US (occurrence: US)
  Receive Date: 20210113
  Receipt Date: 20210113
  Transmission Date: 20210419
  Serious: Yes (Hospitalization, Other)
  Sender: FDA-Public Use
  Company Number: US-DRREDDYS-USA/USA/21/0130828

PATIENT
  Age: 34 Year
  Sex: Male

DRUGS (1)
  1. TESTOSTERONE INJECTABLE SUSPENSION [Suspect]
     Active Substance: TESTOSTERONE
     Indication: PRODUCT USED FOR UNKNOWN INDICATION

REACTIONS (6)
  - Renal arteriosclerosis [Unknown]
  - Focal segmental glomerulosclerosis [Unknown]
  - Rhabdomyolysis [Unknown]
  - Kidney fibrosis [Unknown]
  - Acute kidney injury [Unknown]
  - Renal tubular atrophy [Unknown]
